FAERS Safety Report 9535074 (Version 3)
Quarter: 2013Q4

REPORT INFORMATION
  Report Type: Report from Study
  Country: CO (occurrence: CO)
  Receive Date: 20130918
  Receipt Date: 20131024
  Transmission Date: 20140711
  Serious: Yes (Hospitalization)
  Sender: FDA-Public Use
  Company Number: CO-ROCHE-1277265

PATIENT
  Age: 80 Year
  Sex: Female
  Weight: 56 kg

DRUGS (1)
  1. LUCENTIS [Suspect]
     Indication: MACULAR DEGENERATION
     Route: 050
     Dates: start: 20130525

REACTIONS (2)
  - Hypertension [Recovered/Resolved]
  - Dementia [Unknown]
